FAERS Safety Report 7635356-X (Version None)
Quarter: 2011Q3

REPORT INFORMATION
  Report Type: 
  Country: None (occurrence: None)
  Receive Date: 20110726
  Receipt Date: 20100913
  Transmission Date: 20111222
  Serious: No
  Sender: FDA-Public Use
  Company Number: US-GLAXOSMITHKLINE-A0881623A

PATIENT
  Age: 4 Year
  Sex: Male

DRUGS (1)
  1. XOLEGEL [Suspect]
     Indication: TINEA INFECTION
     Route: 061

REACTIONS (2)
  - DRUG INEFFECTIVE [None]
  - OFF LABEL USE [None]
